FAERS Safety Report 7375072-5 (Version None)
Quarter: 2011Q1

REPORT INFORMATION
  Report Type: 
  Country: None (occurrence: None)
  Receive Date: 20110325
  Receipt Date: 20110304
  Transmission Date: 20110831
  Serious: Yes (Hospitalization)
  Sender: FDA-Public Use
  Company Number: JP-SANOFI-AVENTIS-2010SA019751

PATIENT
  Age: 76 Year
  Sex: Male
  Weight: 42.4 kg

DRUGS (24)
  1. NOVORIN [Suspect]
     Dosage: DOSE AS USED: 8-7-4
     Dates: start: 20091017, end: 20100129
  2. PLETAL [Concomitant]
     Indication: THROMBOSIS PROPHYLAXIS
     Route: 048
     Dates: start: 20090319
  3. AMLODIPINE [Concomitant]
     Route: 048
     Dates: start: 20070427, end: 20100718
  4. FRANDOL [Concomitant]
     Indication: PROPHYLAXIS
     Route: 062
     Dates: start: 20040713
  5. BLINDED THERAPY [Concomitant]
     Indication: PERIPHERAL ARTERIAL OCCLUSIVE DISEASE
     Route: 048
     Dates: start: 20090717, end: 20091016
  6. URSO 250 [Concomitant]
     Route: 048
     Dates: start: 20040713, end: 20100909
  7. KARY UNI [Concomitant]
     Indication: CATARACT
     Route: 047
     Dates: start: 20080609
  8. NOVORIN [Suspect]
     Dosage: DOSE AS USED: 7-6-4
     Dates: start: 20100130, end: 20100326
  9. LOPEMIN [Concomitant]
     Indication: PROPHYLAXIS AGAINST DIARRHOEA
     Route: 048
     Dates: start: 20090926, end: 20100818
  10. LANTUS [Suspect]
     Dosage: EVERY MORNING DOSE:7 UNIT(S)
     Route: 058
     Dates: start: 20091010, end: 20100521
  11. LANTUS [Suspect]
     Dosage: DOSE:5 UNIT(S)
     Route: 058
     Dates: start: 20100522, end: 20100716
  12. FAMOTIDINE [Concomitant]
     Indication: REFLUX OESOPHAGITIS
     Route: 048
     Dates: start: 20040910
  13. METHYCOBAL [Concomitant]
     Indication: DIABETIC NEUROPATHY
     Route: 048
     Dates: start: 20091113
  14. SODIUM BICARBONATE AND CALCIUM CHLORIDE DIHYDRATE AND SODIUM CHLORIDE [Concomitant]
     Indication: PROPHYLAXIS
     Route: 047
     Dates: start: 20080526
  15. LANTUS [Suspect]
     Indication: DIABETES MELLITUS
     Dosage: IN THE MORNING DOSE:7 UNIT(S)
     Route: 058
     Dates: start: 20090619, end: 20091008
  16. NOVORAPID [Suspect]
     Dosage: 6-6-1 UNITS/DAY
     Route: 058
     Dates: start: 20100715, end: 20100715
  17. ITOROL [Concomitant]
     Indication: PROPHYLAXIS
     Route: 048
     Dates: start: 20040810
  18. SOLOSTAR [Suspect]
     Dates: start: 20091010, end: 20100716
  19. NOVORAPID [Suspect]
     Indication: DIABETES MELLITUS
     Dosage: 6-6-4 UNITS/DAY
     Route: 058
     Dates: start: 20100331, end: 20100520
  20. EPADEL [Concomitant]
     Indication: THROMBOSIS PROPHYLAXIS
     Route: 048
     Dates: start: 20090814, end: 20100909
  21. NOVORIN [Suspect]
     Indication: DIABETES MELLITUS
     Dosage: DOSE AS USED: 6-6-4
     Route: 058
     Dates: start: 20100327, end: 20100329
  22. NOVORAPID [Suspect]
     Dosage: 6-6-3 UNITS/DAY
     Route: 058
     Dates: start: 20100521, end: 20100714
  23. NOVORAPID [Suspect]
     Dosage: DOSE:3 UNIT(S)
     Route: 058
     Dates: start: 20100716, end: 20100716
  24. INVESTIGATIONAL DRUG [Concomitant]
     Indication: PERIPHERAL ARTERIAL OCCLUSIVE DISEASE
     Route: 048
     Dates: start: 20091017, end: 20100716

REACTIONS (2)
  - HYPOGLYCAEMIA [None]
  - DECREASED APPETITE [None]
